FAERS Safety Report 4999852-6 (Version None)
Quarter: 2006Q2

REPORT INFORMATION
  Report Type: 
  Country: None (occurrence: None)
  Receive Date: 20060509
  Receipt Date: 20060503
  Transmission Date: 20061013
  Serious: Yes (Hospitalization)
  Sender: FDA-Public Use
  Company Number: CIP06000912

PATIENT
  Age: 78 Year
  Sex: Female

DRUGS (5)
  1. ACTONEL [Suspect]
     Indication: OSTEOPOROSIS
     Dosage: 35 MG ONCE WEEKLY, ORAL
     Route: 048
     Dates: start: 20060406, end: 20060422
  2. TEFOR (LEVOTHYROXINE SODIUM) [Concomitant]
  3. CO-DIOVAN (VALSARTAN, HYDROCHLOROTHIAZIDE) [Concomitant]
  4. DRISENTIN (DIPYRIDAMOLE) [Concomitant]
  5. ASPIRIN [Concomitant]

REACTIONS (3)
  - EATING DISORDER [None]
  - FATIGUE [None]
  - TOXIC EPIDERMAL NECROLYSIS [None]
